FAERS Safety Report 6590845-4 (Version None)
Quarter: 2010Q1

REPORT INFORMATION
  Report Type: 
  Country: None (occurrence: None)
  Receive Date: 20100219
  Receipt Date: 20100210
  Transmission Date: 20100710
  Serious: Yes (Other)
  Sender: FDA-Public Use
  Company Number: B0634760A

PATIENT
  Age: 28 Year
  Sex: Male

DRUGS (1)
  1. NEOTIGASON [Suspect]
     Indication: PSORIASIS
     Route: 048

REACTIONS (2)
  - CONDITION AGGRAVATED [None]
  - PLANTAR FASCIITIS [None]
